FAERS Safety Report 4506930-4 (Version None)
Quarter: 2004Q4

REPORT INFORMATION
  Report Type: 
  Country: None (occurrence: None)
  Receive Date: 20041117
  Receipt Date: 20041112
  Transmission Date: 20050328
  Serious: Yes (Death, Hospitalization)
  Sender: FDA-Public Use
  Company Number: THQ2004A00944

PATIENT
  Age: 82 Year
  Sex: Male

DRUGS (3)
  1. LUPRON DEPOT-4 [Suspect]
     Indication: BENIGN PROSTATIC HYPERPLASIA
     Dosage: 11.25 MG
     Route: 030
     Dates: start: 20040621, end: 20040921
  2. PENTOXIFYLLINE [Concomitant]
  3. LOSARTAN POTASSIUM (LOSARTAN POTASSIUM) (TABLETS) [Concomitant]

REACTIONS (2)
  - MULTI-ORGAN FAILURE [None]
  - PNEUMONIA ASPIRATION [None]
